FAERS Safety Report 7395297-2 (Version None)
Quarter: 2011Q2

REPORT INFORMATION
  Report Type: 
  Country: None (occurrence: None)
  Receive Date: 20110405
  Receipt Date: 20110324
  Transmission Date: 20111010
  Serious: Yes (Death)
  Sender: FDA-Public Use
  Company Number: US-PFIZER INC-2011073804

PATIENT
  Sex: Male

DRUGS (2)
  1. PARACETAMOL [Suspect]
     Indication: TOOTHACHE
     Dosage: UNK
     Route: 065
  2. IBUPROFEN [Suspect]
     Indication: TOOTHACHE
     Dosage: UNK
     Route: 065

REACTIONS (2)
  - INCORRECT DOSE ADMINISTERED [None]
  - LIVER INJURY [None]
